FAERS Safety Report 17963892 (Version 2)
Quarter: 2020Q3

REPORT INFORMATION
  Report Type: Spontaneous
  Country: DE (occurrence: DE)
  Receive Date: 20200630
  Receipt Date: 20200702
  Transmission Date: 20201103
  Serious: Yes (Hospitalization)
  Sender: FDA-Public Use
  Company Number: DE-PFIZER INC-2020249434

PATIENT
  Age: 68 Year
  Sex: Male

DRUGS (14)
  1. APIXABAN [Suspect]
     Active Substance: APIXABAN
     Dosage: 10 MILLIGRAM, Q12H
     Route: 065
  2. RAMIPRIL. [Concomitant]
     Active Substance: RAMIPRIL
     Dosage: 5 MILLIGRAM, QD
  3. VITAMIN D [COLECALCIFEROL] [Concomitant]
     Active Substance: CHOLECALCIFEROL
     Dosage: 1 DF, 1X/DAY (UNK MG, 1?0?0?0)
     Route: 065
  4. EPIPEVISONE [Concomitant]
     Dosage: 10|1 MG, UNKNOWN
     Route: 065
  5. PANTOPRAZOLE [Suspect]
     Active Substance: PANTOPRAZOLE
     Dosage: 40 MILLIGRAM, QD
     Route: 065
  6. VITAMIN B KOMPLEX [CALCIUM PANTOTHENATE;NICOTINAMIDE;PYRIDOXINE HYDROC [Concomitant]
     Dosage: 1 DF, 1X/DAY (UNK MG, 1?0?0?0)
     Route: 065
  7. TAMSULOSIN [Concomitant]
     Active Substance: TAMSULOSIN
     Dosage: 0.4 MILLIGRAM, QD
     Route: 065
  8. FOLIC ACID. [Concomitant]
     Active Substance: FOLIC ACID
     Dosage: 5 MILLIGRAM, 1/WEEK
     Route: 065
  9. FERROUS SULFATE. [Concomitant]
     Active Substance: FERROUS SULFATE
     Dosage: 35 MILLIGRAM, QD
  10. TRIAMTEREN [Concomitant]
     Active Substance: TRIAMTERENE
     Dosage: 10 MILLIGRAM, QD (10 MG, 1?0?0?0)
     Route: 065
  11. SOLEDUM [Concomitant]
     Active Substance: EUCALYPTOL
     Dosage: 1 DF IN THE MORNING (UNK MG)
     Route: 065
  12. MAGNESIUM VERLA [MAGNESIUM GLUTAMATE] [Concomitant]
     Dosage: 1 DF, 1X/DAY
     Route: 065
  13. PROSTAGUTT FORTE [Concomitant]
     Active Substance: HERBALS
     Dosage: 1 DF (80/60 MILLIGRAM), QD
     Route: 065
  14. METHOTREXATE SODIUM. [Suspect]
     Active Substance: METHOTREXATE SODIUM
     Dosage: 15 MILLIGRAM, QWK
     Route: 065

REACTIONS (2)
  - Chest pain [Unknown]
  - Dyspnoea [Unknown]
